FAERS Safety Report 9173258 (Version 2)
Quarter: 2013Q1

REPORT INFORMATION
  Report Type: Spontaneous
  Country: US (occurrence: US)
  Receive Date: 20130320
  Receipt Date: 20130321
  Transmission Date: 20140127
  Serious: Yes (Hospitalization, Other)
  Sender: FDA-Public Use
  Company Number: US-JNJFOC-20130203011

PATIENT
  Age: 84 Year
  Sex: Female
  Weight: 93.9 kg

DRUGS (13)
  1. XARELTO [Suspect]
     Indication: DEEP VEIN THROMBOSIS
     Route: 048
     Dates: start: 20130107, end: 20130112
  2. CLOPIDOGREL [Suspect]
     Indication: ANTIPLATELET THERAPY
     Route: 065
  3. CARDIZEM CD [Concomitant]
     Route: 065
  4. LORATADINE [Concomitant]
     Route: 065
  5. ACIPHEX [Concomitant]
     Route: 048
  6. ATIVAN [Concomitant]
     Dosage: THRICE A DAY AS NECESSARY (PRM)
     Route: 065
  7. LYRINEL [Concomitant]
     Route: 048
  8. ZESTRIL [Concomitant]
     Route: 048
  9. PREVACID [Concomitant]
     Route: 065
  10. DOXYCYCLINE [Concomitant]
     Route: 065
  11. SYNTHROID [Concomitant]
     Route: 065
  12. ANTIVERT [Concomitant]
     Route: 048
  13. ALBUTEROL SULPHATE [Concomitant]
     Route: 065

REACTIONS (1)
  - Gastrointestinal haemorrhage [Recovered/Resolved]
